FAERS Safety Report 13033362 (Version 1)
Quarter: 2016Q4

REPORT INFORMATION
  Report Type: Report from Study
  Country: JP (occurrence: JP)
  Receive Date: 20161216
  Receipt Date: 20161216
  Transmission Date: 20170207
  Serious: Yes (Other)
  Sender: FDA-Public Use
  Company Number: JP-ROCHE-1821634

PATIENT

DRUGS (4)
  1. BENDAMUSTINE [Suspect]
     Active Substance: BENDAMUSTINE
     Indication: B-CELL LYMPHOMA
     Dosage: ON DAYS 1 AND 2
     Route: 042
  2. BENDAMUSTINE [Suspect]
     Active Substance: BENDAMUSTINE
     Indication: MANTLE CELL LYMPHOMA
  3. RITUXIMAB [Suspect]
     Active Substance: RITUXIMAB
     Indication: MANTLE CELL LYMPHOMA
  4. RITUXIMAB [Suspect]
     Active Substance: RITUXIMAB
     Indication: B-CELL LYMPHOMA
     Dosage: ON DAY 1 (DAY 0 OF CYCLE 1) OF EACH 28-DAY CYCLE (UP TO SIX CYCLES).
     Route: 042

REACTIONS (26)
  - Decreased appetite [Unknown]
  - Insomnia [Unknown]
  - Alanine aminotransferase increased [Unknown]
  - Atrial tachycardia [Recovered/Resolved]
  - Thrombocytopenia [Unknown]
  - Dermatitis allergic [Recovered/Resolved]
  - Lymphopenia [Unknown]
  - Infusion related reaction [Unknown]
  - Gamma-glutamyltransferase increased [Unknown]
  - Leukopenia [Unknown]
  - Anaemia [Unknown]
  - Rash [Unknown]
  - Vomiting [Unknown]
  - Tumour lysis syndrome [Recovered/Resolved]
  - Chromosome analysis abnormal [Recovered/Resolved]
  - Aspartate aminotransferase increased [Unknown]
  - Pruritus [Unknown]
  - Rash maculo-papular [Unknown]
  - Breast cancer [Recovered/Resolved]
  - Bacterial infection [Unknown]
  - Neutropenia [Unknown]
  - Febrile neutropenia [Unknown]
  - Infection [Unknown]
  - Nausea [Unknown]
  - Pneumonia cytomegaloviral [Recovered/Resolved]
  - Pyrexia [Recovered/Resolved]
